FAERS Safety Report 9251115 (Version 1)
Quarter: 2013Q1

REPORT INFORMATION
  Report Type: Spontaneous
  Country: US (occurrence: None)
  Receive Date: 20130305
  Receipt Date: 20130305
  Transmission Date: 20140127
  Serious: Yes (Hospitalization, Other)
  Sender: FDA-Public Use
  Company Number: 163-21880-12042268

PATIENT
  Age: 76 Year
  Sex: Female
  Weight: 66.45 kg

DRUGS (7)
  1. REVLIMID [Suspect]
     Indication: CHRONIC LYMPHOCYTIC LEUKAEMIA
     Dosage: 04/16/2012 - 04/16/2012, 10 MG, X 28 DAYS, PO
  2. ALLOPURINOL [Concomitant]
  3. BETACAROTENE (BETACAROTENE) [Concomitant]
  4. CYCLOSPORINE (CICLOSPORIN) [Concomitant]
  5. LORAZEPAM (LORAZEPAM) [Concomitant]
  6. SENOKOT S (COLOXYL WITH SENNA) [Concomitant]
  7. ZOLOFT (SERTRALINE HYDROCHLORIDE) [Concomitant]

REACTIONS (1)
  - Tumour lysis syndrome [None]
